FAERS Safety Report 4847268-5 (Version None)
Quarter: 2005Q4

REPORT INFORMATION
  Report Type: 
  Country: None (occurrence: None)
  Receive Date: 20051205
  Receipt Date: 20051128
  Transmission Date: 20060501
  Serious: Yes (Other)
  Sender: FDA-Public Use
  Company Number: 2005159664

PATIENT
  Age: 25 Year
  Sex: Male
  Weight: 72.5755 kg

DRUGS (1)
  1. NATURAL CITRUS LISTERINE (MENTHOL, METHYL SALICYLATE, EUCALYPTOL, THYM [Suspect]
     Indication: ALCOHOL POISONING
     Dosage: WHOLE BOTTLE ONCE (250 ML), ORAL
     Route: 048
     Dates: start: 20051128, end: 20051128

REACTIONS (1)
  - GASTRIC DISORDER [None]
